FAERS Safety Report 9507131 (Version 1)
Quarter: 2013Q1

REPORT INFORMATION
  Report Type: Spontaneous
  Country: US (occurrence: None)
  Receive Date: 20130301
  Receipt Date: 20130301
  Transmission Date: 20140127
  Serious: Yes (Other)
  Sender: FDA-Public Use
  Company Number: RB-39708-2012

PATIENT
  Age: 19 Month
  Sex: 0

DRUGS (1)
  1. SUBUTEX [Suspect]
     Indication: PRODUCT USED FOR UNKNOWN INDICATION
     Dosage: (DOSING DETAILS  UNKNOWN)

REACTIONS (2)
  - Accidental exposure to product by child [None]
  - Respiratory rate decreased [None]
